FAERS Safety Report 17866032 (Version 2)
Quarter: 2020Q2

REPORT INFORMATION
  Report Type: Spontaneous
  Country: DE (occurrence: DE)
  Receive Date: 20200605
  Receipt Date: 20200624
  Transmission Date: 20200714
  Serious: Yes (Hospitalization)
  Sender: FDA-Public Use
  Company Number: NVSC2020DE155199

PATIENT
  Age: 74 Year
  Sex: Male

DRUGS (28)
  1. FLUTICASONE,SALMETEROL [Suspect]
     Active Substance: FLUTICASONE PROPIONATE\SALMETEROL XINAFOATE
     Indication: PRODUCT USED FOR UNKNOWN INDICATION
     Dosage: 2-0-0-2 (0.25 DAY)
     Route: 065
  2. ALLOPURINOL. [Concomitant]
     Active Substance: ALLOPURINOL
     Indication: PRODUCT USED FOR UNKNOWN INDICATION
     Dosage: UNK
     Route: 065
  3. TAMSULOSIN [Suspect]
     Active Substance: TAMSULOSIN
     Dosage: 0.4 MG, QD
     Route: 065
  4. SALBUTAMOL [Suspect]
     Active Substance: ALBUTEROL
     Dosage: 40 MG, QD
     Route: 065
  5. CARVEDILOL. [Suspect]
     Active Substance: CARVEDILOL
     Indication: PRODUCT USED FOR UNKNOWN INDICATION
     Dosage: 0.5-0.5-0-0.5 (0.33 DAY)
     Route: 065
  6. CARVEDILOL. [Suspect]
     Active Substance: CARVEDILOL
     Dosage: 0.5-0.5-0-0.5
     Route: 065
  7. SIMVASTATIN. [Suspect]
     Active Substance: SIMVASTATIN
     Indication: PRODUCT USED FOR UNKNOWN INDICATION
     Dosage: 40 MG, QD
     Route: 065
  8. SIMVASTATIN. [Suspect]
     Active Substance: SIMVASTATIN
     Dosage: 40 MG, QD
     Route: 065
  9. ACETYLSALICYLIC ACID [Concomitant]
     Active Substance: ASPIRIN
     Dosage: 100 MG, QD
     Route: 065
  10. FUROSEMID [Concomitant]
     Active Substance: FUROSEMIDE
     Indication: PRODUCT USED FOR UNKNOWN INDICATION
     Dosage: UNK
     Route: 065
  11. TAMSULOSIN [Suspect]
     Active Substance: TAMSULOSIN
     Indication: PRODUCT USED FOR UNKNOWN INDICATION
     Dosage: 0.4 MG, QD (0-1-0-0)
     Route: 065
  12. SALBUTAMOL [Suspect]
     Active Substance: ALBUTEROL
     Dosage: 40 MG, QD
     Route: 065
  13. AMLODIPINE [Suspect]
     Active Substance: AMLODIPINE BESYLATE
     Indication: PRODUCT USED FOR UNKNOWN INDICATION
     Dosage: 5 MG, QD (0-0-0-1)
     Route: 065
  14. TORASEMIDE [Suspect]
     Active Substance: TORSEMIDE
     Indication: PRODUCT USED FOR UNKNOWN INDICATION
     Dosage: 10 MG, QD (1-0-0-0)
     Route: 065
  15. TORASEMIDE [Suspect]
     Active Substance: TORSEMIDE
     Dosage: 10 MG, QD
     Route: 065
  16. IBUPROFEN. [Concomitant]
     Active Substance: IBUPROFEN
     Dosage: BEDARF
     Route: 065
  17. ALLOPURINOL. [Concomitant]
     Active Substance: ALLOPURINOL
     Dosage: 300 MG, QD
     Route: 065
  18. IBUPROFEN. [Concomitant]
     Active Substance: IBUPROFEN
     Indication: PRODUCT USED FOR UNKNOWN INDICATION
     Dosage: UNK
     Route: 065
  19. ENALAPRIL [Concomitant]
     Active Substance: ENALAPRIL
     Indication: PRODUCT USED FOR UNKNOWN INDICATION
     Dosage: UNK
     Route: 065
  20. TAMSULOSIN [Suspect]
     Active Substance: TAMSULOSIN
     Dosage: 0.4 MG, QD
     Route: 065
  21. CARVEDILOL. [Suspect]
     Active Substance: CARVEDILOL
     Dosage: 12.5 MG (0.5-0.5-0-0.5)
     Route: 065
  22. SIMVASTATIN. [Suspect]
     Active Substance: SIMVASTATIN
     Dosage: 40 MG, QD
     Route: 065
  23. ACETYLSALICYLIC ACID [Concomitant]
     Active Substance: ASPIRIN
     Indication: PRODUCT USED FOR UNKNOWN INDICATION
     Dosage: UNK
     Route: 065
  24. SALBUTAMOL [Suspect]
     Active Substance: ALBUTEROL
     Indication: PRODUCT USED FOR UNKNOWN INDICATION
     Dosage: 40 MG, QD (1-0-0-0)
     Route: 065
  25. TORASEMIDE [Suspect]
     Active Substance: TORSEMIDE
     Dosage: 10 MG, QD
     Route: 065
  26. ENALAPRIL [Concomitant]
     Active Substance: ENALAPRIL
     Dosage: 5 MG, 1-0-0-2
     Route: 065
  27. EKLIRA GENUAIR [Concomitant]
     Active Substance: ACLIDINIUM BROMIDE
     Indication: PRODUCT USED FOR UNKNOWN INDICATION
     Dosage: UNK
     Route: 065
  28. EKLIRA GENUAIR [Concomitant]
     Active Substance: ACLIDINIUM BROMIDE
     Dosage: 1-0-0-1
     Route: 065

REACTIONS (3)
  - Atrial fibrillation [Recovered/Resolved]
  - Electrocardiogram abnormal [Recovered/Resolved]
  - Bradycardia [Recovered/Resolved]
